FAERS Safety Report 19771710 (Version 1)
Quarter: 2021Q3

REPORT INFORMATION
  Report Type: Spontaneous
  Country: FR (occurrence: FR)
  Receive Date: 20210831
  Receipt Date: 20210831
  Transmission Date: 20211014
  Serious: Yes (Hospitalization, Other)
  Sender: FDA-Public Use
  Company Number: PT-SUNOVION-2021SUN003373

PATIENT

DRUGS (1)
  1. ZEBINIX [Suspect]
     Active Substance: ESLICARBAZEPINE ACETATE
     Indication: PARTIAL SEIZURES
     Dosage: 1 DOSAGE FORM, QD
     Route: 048
     Dates: start: 20210703, end: 20210802

REACTIONS (4)
  - Pancytopenia [Recovering/Resolving]
  - Hepatic cytolysis [Recovering/Resolving]
  - Toxic skin eruption [Recovering/Resolving]
  - Cholestasis [Recovering/Resolving]

NARRATIVE: CASE EVENT DATE: 20210802
